FAERS Safety Report 4286724-8 (Version None)
Quarter: 2004Q1

REPORT INFORMATION
  Report Type: 
  Country: None (occurrence: None)
  Receive Date: 20040204
  Receipt Date: 20040122
  Transmission Date: 20041129
  Serious: Yes (Other)
  Sender: FDA-Public Use
  Company Number: 2004006445

PATIENT
  Sex: Female

DRUGS (4)
  1. LIPITOR [Suspect]
     Indication: ILL-DEFINED DISORDER
  2. SOTALOL HCL [Concomitant]
  3. FOLIC ACID [Concomitant]
  4. ACETYLSALICYLIC ACID SRT [Concomitant]

REACTIONS (2)
  - CARDIAC OPERATION [None]
  - VOMITING [None]
